FAERS Safety Report 11791472 (Version 2)
Quarter: 2015Q4

REPORT INFORMATION
  Report Type: Spontaneous
  Country: ES (occurrence: ES)
  Receive Date: 20151201
  Receipt Date: 20151204
  Transmission Date: 20160305
  Serious: Yes (Death, Hospitalization, Other)
  Sender: FDA-Public Use
  Company Number: ES-BAYER-2015-473591

PATIENT
  Age: 71 Year
  Sex: Male

DRUGS (1)
  1. STIVARGA [Suspect]
     Active Substance: REGORAFENIB
     Indication: RECTAL CANCER STAGE IV
     Dosage: UNK
     Route: 048
     Dates: start: 20150226, end: 2015

REACTIONS (5)
  - Hyperbilirubinaemia [None]
  - Rectal haemorrhage [None]
  - Rectal cancer stage IV [Fatal]
  - Platelet count decreased [None]
  - Diarrhoea [None]

NARRATIVE: CASE EVENT DATE: 2015
